FAERS Safety Report 26130911 (Version 1)
Quarter: 2025Q4

REPORT INFORMATION
  Report Type: Report from Study
  Country: US (occurrence: US)
  Receive Date: 20251208
  Receipt Date: 20251208
  Transmission Date: 20260118
  Serious: Yes (Other)
  Sender: TAKEDA
  Company Number: US-TAKEDA-2025TUS110474

PATIENT
  Age: 61 Year
  Sex: Female

DRUGS (1)
  1. VEDOLIZUMAB [Suspect]
     Active Substance: VEDOLIZUMAB
     Indication: Product used for unknown indication
     Dosage: UNK

REACTIONS (5)
  - Colitis microscopic [Unknown]
  - Gastrooesophageal reflux disease [Unknown]
  - Hiatus hernia [Unknown]
  - Hypophagia [Unknown]
  - Weight decreased [Unknown]
